FAERS Safety Report 4333807-X (Version None)
Quarter: 2004Q2

REPORT INFORMATION
  Report Type: 
  Country: None (occurrence: None)
  Receive Date: 20040402
  Receipt Date: 20040323
  Transmission Date: 20050107
  Serious: Yes (Other)
  Sender: FDA-Public Use
  Company Number: ES-JNJFOC-20031203973

PATIENT
  Age: 9 Year
  Sex: Male
  Weight: 35 kg

DRUGS (1)
  1. RISPERDAL [Suspect]
     Indication: PSYCHOMOTOR HYPERACTIVITY
     Dosage: 7.5 ML, IN 1 DAY, ORAL
     Route: 048
     Dates: end: 20040301

REACTIONS (4)
  - DRUG HYPERSENSITIVITY [None]
  - DYSTONIA [None]
  - LORDOSIS [None]
  - PAIN [None]
